FAERS Safety Report 5633952-2 (Version None)
Quarter: 2008Q1

REPORT INFORMATION
  Report Type: 
  Country: None (occurrence: None)
  Receive Date: 20080131
  Receipt Date: 20070516
  Transmission Date: 20080703
  Serious: Yes (Other)
  Sender: FDA-Public Use
  Company Number: 156530USA

PATIENT
  Sex: Male

DRUGS (1)
  1. COPAXONE [Suspect]
     Dosage: LENGTH OF THERAPY APPROXIMATELY ONE YEAR

REACTIONS (2)
  - ANGIOEDEMA [None]
  - PRURITUS [None]
